FAERS Safety Report 6352408-5 (Version None)
Quarter: 2009Q3

REPORT INFORMATION
  Report Type: 
  Country: None (occurrence: None)
  Receive Date: 20090912
  Receipt Date: 20090622
  Transmission Date: 20100115
  Serious: No
  Sender: FDA-Public Use
  Company Number: US-ABBOTT-08P-163-0439763-00

PATIENT
  Sex: Female
  Weight: 64.922 kg

DRUGS (4)
  1. HUMIRA [Suspect]
     Indication: PSORIATIC ARTHROPATHY
     Route: 058
     Dates: start: 20071001, end: 20080501
  2. HUMIRA [Suspect]
     Route: 050
     Dates: start: 20080501
  3. HYDROCHLOROTHIAZIDE [Concomitant]
     Indication: OEDEMA PERIPHERAL
     Route: 048
  4. IBUPROFEN [Concomitant]
     Indication: PSORIATIC ARTHROPATHY
     Route: 048

REACTIONS (10)
  - ACCIDENTAL EXPOSURE [None]
  - ARTHRITIS [None]
  - CONTUSION [None]
  - INCORRECT DOSE ADMINISTERED [None]
  - INJECTION SITE HAEMATOMA [None]
  - INJECTION SITE HAEMORRHAGE [None]
  - INJECTION SITE NODULE [None]
  - INJECTION SITE PAIN [None]
  - INJECTION SITE PRURITUS [None]
  - MYALGIA [None]
